FAERS Safety Report 8895360 (Version 5)
Quarter: 2013Q2

REPORT INFORMATION
  Report Type: Spontaneous
  Country: US (occurrence: US)
  Receive Date: 20121107
  Receipt Date: 20130508
  Transmission Date: 20140414
  Serious: Yes (Death, Life-Threatening, Hospitalization, Disabling, Other)
  Sender: FDA-Public Use
  Company Number: US-009507513-1211USA002627

PATIENT
  Age: 58 Year
  Sex: Male
  Weight: 87.98 kg

DRUGS (5)
  1. VICTRELIS [Suspect]
     Indication: HEPATIC CIRRHOSIS
     Dosage: 800 MG, TID
     Route: 048
     Dates: start: 20120806, end: 20120920
  2. PEGASYS [Suspect]
     Dosage: UNK
     Dates: start: 20120713, end: 20120920
  3. REBETOL [Suspect]
     Dosage: UNK
     Route: 048
     Dates: start: 20120713, end: 20120920
  4. CYCLOSPORINE [Concomitant]
     Dosage: UNK UNK, QD
     Route: 048
     Dates: start: 20120402, end: 20120929
  5. FUROSEMIDE [Concomitant]

REACTIONS (5)
  - Renal failure acute [Fatal]
  - Haematemesis [Fatal]
  - Transfusion [Fatal]
  - Liver injury [Fatal]
  - Haemorrhage [Fatal]
